FAERS Safety Report 23985544 (Version 1)
Quarter: 2024Q2

REPORT INFORMATION
  Report Type: Spontaneous
  Country: NL (occurrence: NL)
  Receive Date: 20240618
  Receipt Date: 20240618
  Transmission Date: 20240716
  Serious: Yes (Hospitalization, Other)
  Sender: FDA-Public Use
  Company Number: NL-STADA-01250411

PATIENT
  Age: 24 Year
  Sex: Male
  Weight: 44 kg

DRUGS (11)
  1. BACLOFEN [Interacting]
     Active Substance: BACLOFEN
     Indication: Muscle spasticity
     Dosage: 672 MICROGRAM, ONCE A DAY (PUMP)
     Route: 037
     Dates: start: 2012
  2. FENTANYL [Interacting]
     Active Substance: FENTANYL\FENTANYL CITRATE
     Indication: Pain
     Dosage: UNK
     Route: 065
     Dates: start: 2012, end: 2012
  3. PIRITRAMIDE [Interacting]
     Active Substance: PIRITRAMIDE
     Indication: Pain
     Dosage: 7 MILLIGRAM
     Route: 058
     Dates: start: 2012, end: 2012
  4. PIRITRAMIDE [Interacting]
     Active Substance: PIRITRAMIDE
     Dosage: 3 MILLIGRAM
     Route: 042
     Dates: start: 2012, end: 2012
  5. TRAMADOL [Interacting]
     Active Substance: TRAMADOL\TRAMADOL HYDROCHLORIDE
     Indication: Pain
     Dosage: 100 MILLIGRAM, TWO TIMES A DAY (SUPPOSITORY FORM)
     Route: 065
     Dates: start: 2012, end: 2012
  6. POLYETHYLENE GLYCOLS [Concomitant]
     Active Substance: POLYETHYLENE GLYCOLS
     Indication: Product used for unknown indication
     Dosage: UNK
     Route: 065
  7. BISACODYL [Concomitant]
     Active Substance: BISACODYL
     Indication: Product used for unknown indication
     Dosage: 10 MILLIGRAM, EVERY 3 WEEK
     Route: 065
  8. OMEPRAZOLE [Concomitant]
     Active Substance: DONEPEZIL HYDROCHLORIDE\OMEPRAZOLE\OMEPRAZOLE MAGNESIUM
     Indication: Product used for unknown indication
     Dosage: 40 MILLIGRAM, TWO TIMES A DAY40 MILLIGRAM, TWO TIMES A DAY
     Route: 065
  9. CHOLECALCIFEROL [Concomitant]
     Active Substance: CHOLECALCIFEROL
     Indication: Product used for unknown indication
     Dosage: UNK
     Route: 065
  10. ACETAMINOPHEN [Concomitant]
     Active Substance: ACETAMINOPHEN
     Indication: Pain
     Dosage: UNK
     Route: 065
     Dates: start: 2012
  11. DICLOFENAC [Concomitant]
     Active Substance: DICLOFENAC
     Indication: Pain
     Dosage: UNK
     Route: 065
     Dates: start: 2012

REACTIONS (4)
  - Depressed level of consciousness [Recovered/Resolved]
  - Respiratory depression [Recovered/Resolved]
  - Drug interaction [Recovered/Resolved]
  - Overdose [Recovered/Resolved]

NARRATIVE: CASE EVENT DATE: 20120101
